FAERS Safety Report 14000144 (Version 2)
Quarter: 2018Q3

REPORT INFORMATION
  Report Type: Report from Study
  Country: BR (occurrence: BR)
  Receive Date: 20170922
  Receipt Date: 20180726
  Transmission Date: 20181010
  Serious: Yes (Other)
  Sender: FDA-Public Use
  Company Number: PHHY2017BR137604

PATIENT
  Sex: Female
  Weight: 76 kg

DRUGS (3)
  1. SANDOSTATIN LAR DEPOT [Suspect]
     Active Substance: OCTREOTIDE ACETATE
     Indication: ACROMEGALY
     Dosage: 30 MG, QMO
     Route: 050
     Dates: start: 2015
  2. SANDOSTATIN LAR DEPOT [Suspect]
     Active Substance: OCTREOTIDE ACETATE
     Dosage: 30 MG, QMO
     Route: 030
     Dates: start: 20180309
  3. SANDOSTATIN LAR DEPOT [Suspect]
     Active Substance: OCTREOTIDE ACETATE
     Dosage: 20 MG, QMO
     Route: 065
     Dates: start: 20160316, end: 20180217

REACTIONS (14)
  - Arteriosclerosis [Unknown]
  - Visual impairment [Unknown]
  - Blood growth hormone increased [Unknown]
  - Tendon injury [Unknown]
  - Tremor [Unknown]
  - Headache [Unknown]
  - Bursitis [Unknown]
  - Drug ineffective [Unknown]
  - Weight increased [Unknown]
  - Neoplasm progression [Unknown]
  - Feeling hot [Unknown]
  - Diabetes mellitus [Unknown]
  - Hyperhidrosis [Unknown]
  - Weight decreased [Unknown]
